FAERS Safety Report 7462062-7 (Version None)
Quarter: 2011Q2

REPORT INFORMATION
  Report Type: 
  Country: None (occurrence: None)
  Receive Date: 20110506
  Receipt Date: 20110412
  Transmission Date: 20111010
  Serious: Yes (Hospitalization, Other)
  Sender: FDA-Public Use
  Company Number: US-BAYER-201025499NA

PATIENT
  Sex: Female

DRUGS (4)
  1. YAZ [Suspect]
     Indication: PREMENSTRUAL SYNDROME
     Dates: start: 20060101
  2. PROZAC [Concomitant]
     Dosage: UNK
     Dates: start: 20060101
  3. NSAID'S [Concomitant]
  4. TRAMADOL [Concomitant]

REACTIONS (5)
  - CHOLELITHIASIS [None]
  - BILIARY DYSKINESIA [None]
  - GALLBLADDER INJURY [None]
  - PAIN [None]
  - ABDOMINAL PAIN UPPER [None]
